FAERS Safety Report 14320256 (Version 1)
Quarter: 2017Q4

REPORT INFORMATION
  Report Type: Spontaneous
  Country: CA (occurrence: CA)
  Receive Date: 20171222
  Receipt Date: 20171222
  Transmission Date: 20180321
  Serious: No
  Sender: FDA-Public Use
  Company Number: None

PATIENT
  Age: 62 Year
  Sex: Female
  Weight: 88.22 kg

DRUGS (5)
  1. ANAPROX [Concomitant]
     Active Substance: NAPROXEN SODIUM
  2. NASACORT ALLERGY 24HR [Suspect]
     Active Substance: TRIAMCINOLONE ACETONIDE
     Indication: MULTIPLE ALLERGIES
     Dosage: 55MG SPRAY 1 SPRAY 1 DAILY NOSE SPRAY BEFORE BED 1 SPRAY
     Route: 045
     Dates: start: 20170911, end: 20171113
  3. IRON [Concomitant]
     Active Substance: IRON
  4. MSM [Concomitant]
     Active Substance: DIMETHYL SULFONE
  5. BREAST DEFEND [Concomitant]

REACTIONS (7)
  - Speech disorder [None]
  - Nasal disorder [None]
  - Nausea [None]
  - Nasal discomfort [None]
  - Oropharyngeal pain [None]
  - Swelling [None]
  - Vocal cord disorder [None]

NARRATIVE: CASE EVENT DATE: 20170915
